FAERS Safety Report 4342560-5 (Version None)
Quarter: 2004Q1

REPORT INFORMATION
  Report Type: 
  Country: None (occurrence: None)
  Receive Date: 20040213
  Receipt Date: 20031216
  Transmission Date: 20041129
  Serious: Yes (Other)
  Sender: FDA-Public Use
  Company Number: 354334

PATIENT
  Age: 48 Year
  Sex: Female

DRUGS (2)
  1. PEGASYS [Suspect]
     Indication: HEPATITIS C
     Dosage: 180 MCG 1 PER WEEK SUBCUTANEOUS
     Route: 058
     Dates: start: 20031028, end: 20031218
  2. COPEGUS [Suspect]
     Indication: HEPATITIS C
     Dosage: 1000 MG DAILY 2 PER DAY ORAL
     Route: 048
     Dates: start: 20031028, end: 20031218

REACTIONS (11)
  - BURNING SENSATION [None]
  - DIABETES MELLITUS [None]
  - DYSGEUSIA [None]
  - GASTROINTESTINAL HAEMORRHAGE [None]
  - HAEMATEMESIS [None]
  - HYPERGLYCAEMIA [None]
  - PANIC ATTACK [None]
  - PIGMENTED NAEVUS [None]
  - PRECANCEROUS SKIN LESION [None]
  - PRURITUS [None]
  - RASH MACULAR [None]
